FAERS Safety Report 15802898 (Version 2)
Quarter: 2019Q1

REPORT INFORMATION
  Report Type: Report from Study
  Country: US (occurrence: US)
  Receive Date: 20190109
  Receipt Date: 20190311
  Transmission Date: 20190417
  Serious: Yes (Hospitalization)
  Sender: FDA-Public Use
  Company Number: US-PFIZER INC-2018416926

PATIENT
  Age: 61 Year
  Sex: Male

DRUGS (3)
  1. SUTENT [Suspect]
     Active Substance: SUNITINIB MALATE
     Dosage: 37.5 MG, CYCLIC (DAILY FOR 28 DAYS ON AND 14 DAYS OFF)
     Route: 048
     Dates: start: 20181102
  2. SUTENT [Suspect]
     Active Substance: SUNITINIB MALATE
     Dosage: 50 MG, CYCLIC (28 DAYS ON AND 14 DAYS OFF)
     Route: 048
     Dates: start: 20181211, end: 20181224
  3. SUTENT [Suspect]
     Active Substance: SUNITINIB MALATE
     Indication: RENAL CELL CARCINOMA
     Dosage: 25 MG, CYCLIC (DAILY/28 DAYS ON/14 DAYS OFF)
     Route: 048
     Dates: start: 20180919

REACTIONS (16)
  - Stomatitis [Not Recovered/Not Resolved]
  - Osteomyelitis [Unknown]
  - Nausea [Not Recovered/Not Resolved]
  - Oral infection [Unknown]
  - Hypotension [Unknown]
  - Tinnitus [Unknown]
  - Blood creatinine increased [Not Recovered/Not Resolved]
  - Dehydration [Unknown]
  - Dysstasia [Unknown]
  - Fatigue [Unknown]
  - Palmar-plantar erythrodysaesthesia syndrome [Unknown]
  - Pyrexia [Unknown]
  - Liver function test decreased [Unknown]
  - Mucosal inflammation [Not Recovered/Not Resolved]
  - Loss of consciousness [Unknown]
  - Aphonia [Recovering/Resolving]

NARRATIVE: CASE EVENT DATE: 2018
